FAERS Safety Report 16115619 (Version 2)
Quarter: 2019Q2

REPORT INFORMATION
  Report Type: Report from Study
  Country: None (occurrence: US)
  Receive Date: 20190325
  Receipt Date: 20190403
  Transmission Date: 20190711
  Serious: No
  Sender: FDA-Public Use
  Company Number: US-ABBVIE-19S-163-2712469-00

PATIENT
  Age: 71 Year
  Sex: Female

DRUGS (1)
  1. CREON [Suspect]
     Active Substance: PANCRELIPASE AMYLASE\PANCRELIPASE LIPASE\PANCRELIPASE PROTEASE
     Indication: PRODUCT USED FOR UNKNOWN INDICATION
     Route: 048
     Dates: start: 20160328

REACTIONS (18)
  - Hypercholesterolaemia [Unknown]
  - Hypertriglyceridaemia [Unknown]
  - Fatigue [Unknown]
  - Poor quality sleep [Unknown]
  - Colon adenoma [Unknown]
  - Large intestine polyp [Unknown]
  - Dry skin [Unknown]
  - Exostosis [Unknown]
  - Diverticulum intestinal [Unknown]
  - Rib fracture [Unknown]
  - Coronary artery disease [Unknown]
  - Skin lesion [Unknown]
  - Depression [Unknown]
  - Foot deformity [Unknown]
  - Hyperkeratosis [Unknown]
  - Coronary artery disease [Unknown]
  - Diabetic retinopathy [Unknown]
  - Weight increased [Unknown]

NARRATIVE: CASE EVENT DATE: 20161114
